FAERS Safety Report 12901073 (Version 2)
Quarter: 2016Q4

REPORT INFORMATION
  Report Type: Spontaneous
  Country: CA (occurrence: CA)
  Receive Date: 20161101
  Receipt Date: 20161205
  Transmission Date: 20170207
  Serious: Yes (Hospitalization, Other)
  Sender: FDA-Public Use
  Company Number: CA-SUNOVION-2016SUN002624

PATIENT
  Age: 69 Year
  Sex: Male
  Weight: 85 kg

DRUGS (9)
  1. KEPPRA [Concomitant]
     Active Substance: LEVETIRACETAM
  2. LIPITOR [Concomitant]
     Active Substance: ATORVASTATIN CALCIUM
  3. APTIOM [Suspect]
     Active Substance: ESLICARBAZEPINE ACETATE
     Indication: EPILEPSY
     Dosage: 400 MG, QD
     Route: 048
     Dates: start: 20151206, end: 201602
  4. ASA [Concomitant]
     Active Substance: ASPIRIN
  5. AMPICILLIN [Concomitant]
     Active Substance: AMPICILLIN
  6. CARBAMAZEPINE. [Concomitant]
     Active Substance: CARBAMAZEPINE
  7. ATIVAN [Concomitant]
     Active Substance: LORAZEPAM
  8. METFORMIN [Concomitant]
     Active Substance: METFORMIN HYDROCHLORIDE
  9. TYLENOL [Concomitant]
     Active Substance: ACETAMINOPHEN

REACTIONS (10)
  - Rash [Recovered/Resolved]
  - Genital lesion [Recovered/Resolved]
  - Seizure [Unknown]
  - Mucous membrane disorder [Recovered/Resolved]
  - Urinary tract infection [Unknown]
  - Pyrexia [Recovered/Resolved]
  - Malaise [Recovered/Resolved]
  - Stevens-Johnson syndrome [Recovered/Resolved]
  - Blister [Recovered/Resolved]
  - Electrolyte imbalance [Recovered/Resolved]

NARRATIVE: CASE EVENT DATE: 20160130
